FAERS Safety Report 8604647-8 (Version None)
Quarter: 2012Q3

REPORT INFORMATION
  Report Type: 
  Country: None (occurrence: None)
  Receive Date: 20120820
  Receipt Date: 20120809
  Transmission Date: 20120928
  Serious: Yes (Hospitalization, Other)
  Sender: FDA-Public Use
  Company Number: PHHY2012FI062329

PATIENT
  Age: 50 Year
  Sex: Female

DRUGS (8)
  1. CLOZAPINE [Suspect]
     Dosage: 250 MG, QD
     Route: 048
     Dates: start: 20120719
  2. HALOPERIDOL [Concomitant]
  3. ABILIFY [Concomitant]
  4. METRONIDAZOLE HCL [Concomitant]
     Dosage: 400 MG, TID
  5. CLOZAPINE [Suspect]
     Dosage: 500 MG, PER DAY
     Route: 048
  6. OBSIDAN [Concomitant]
  7. PRIMOLUT [Concomitant]
     Indication: UTERINE HAEMORRHAGE
     Dosage: 10 MG, QD
     Dates: start: 20120701
  8. GAVISCON [Concomitant]

REACTIONS (18)
  - METABOLIC DISORDER [None]
  - BLOOD CREATININE INCREASED [None]
  - HEPATIC ENZYME INCREASED [None]
  - URINARY TRACT INFECTION [None]
  - INSOMNIA [None]
  - ANAEMIA [None]
  - BODY MASS INDEX INCREASED [None]
  - ENTEROCOCCUS TEST POSITIVE [None]
  - UROSEPSIS [None]
  - MALAISE [None]
  - CONSTIPATION [None]
  - LIVER DISORDER [None]
  - RENAL IMPAIRMENT [None]
  - ANTIPSYCHOTIC DRUG LEVEL INCREASED [None]
  - BLOOD TRIGLYCERIDES INCREASED [None]
  - C-REACTIVE PROTEIN INCREASED [None]
  - OROPHARYNGEAL PAIN [None]
  - PROTEINURIA [None]
